FAERS Safety Report 9098976 (Version 1)
Quarter: 2013Q1

REPORT INFORMATION
  Report Type: Spontaneous
  Country: US (occurrence: US)
  Receive Date: 20130213
  Receipt Date: 20130213
  Transmission Date: 20140127
  Serious: Yes (Hospitalization)
  Sender: FDA-Public Use
  Company Number: US-UCBSA-077866

PATIENT
  Age: 67 Year
  Sex: Male

DRUGS (1)
  1. VIMPAT [Suspect]

REACTIONS (2)
  - Syncope [Unknown]
  - Bradycardia [Recovered/Resolved]
